FAERS Safety Report 12914550 (Version 1)
Quarter: 2016Q4

REPORT INFORMATION
  Report Type: Spontaneous
  Country: US (occurrence: US)
  Receive Date: 20161106
  Receipt Date: 20161106
  Transmission Date: 20170207
  Serious: No
  Sender: FDA-Public Use
  Company Number: US-RELYPSA-RLY2016003193

PATIENT
  Sex: Male

DRUGS (9)
  1. VELTASSA [Suspect]
     Active Substance: PATIROMER
     Indication: HYPERKALAEMIA
     Dosage: 8.4 G, QD
     Route: 048
  2. VYTORIN [Concomitant]
     Active Substance: EZETIMIBE\SIMVASTATIN
  3. LIDOCAINE W/PRILOCAINE [Concomitant]
  4. ELIQUIS [Concomitant]
     Active Substance: APIXABAN
  5. FOSRENOL [Concomitant]
     Active Substance: LANTHANUM CARBONATE
  6. AMLODIPINE BESYLATE. [Concomitant]
     Active Substance: AMLODIPINE BESYLATE
  7. MULTAQ [Concomitant]
     Active Substance: DRONEDARONE
  8. FENOFIBRATE. [Concomitant]
     Active Substance: FENOFIBRATE
  9. METOPROLOL TARTRATE. [Concomitant]
     Active Substance: METOPROLOL TARTRATE

REACTIONS (2)
  - Inappropriate schedule of drug administration [Unknown]
  - Blood potassium abnormal [Unknown]
